FAERS Safety Report 6703431-X (Version None)
Quarter: 2010Q2

REPORT INFORMATION
  Report Type: 
  Country: None (occurrence: None)
  Receive Date: 20100423
  Receipt Date: 20091204
  Transmission Date: 20101027
  Serious: Yes (Other)
  Sender: FDA-Public Use
  Company Number: ALL1-2009-03504

PATIENT
  Age: 45 Year
  Sex: Female
  Weight: 63.5 kg

DRUGS (10)
  1. VYVANSE [Suspect]
     Indication: ATTENTION DEFICIT/HYPERACTIVITY DISORDER
     Dosage: 70 MG, 1X/DAY:QD, ORAL
     Route: 048
     Dates: start: 20080601
  2. ADDERALL (AMFETAMINE ASPARTATE, AMFETAMINE SULFATE, DEXAMFETAMINE SACC [Concomitant]
  3. PROZAC [Concomitant]
  4. ABILIFY [Concomitant]
  5. INDERAL LA [Concomitant]
  6. TOPAMAX [Concomitant]
  7. LEVOTHYROID (LEVOTHYROXINE SODIUM) [Concomitant]
  8. XANAX [Concomitant]
  9. LIPITOR [Concomitant]
  10. RANITIDINE [Concomitant]

REACTIONS (5)
  - ABNORMAL LOSS OF WEIGHT [None]
  - CONDITION AGGRAVATED [None]
  - DIARRHOEA [None]
  - GASTROOESOPHAGEAL REFLUX DISEASE [None]
  - VOMITING [None]
